FAERS Safety Report 24087752 (Version 2)
Quarter: 2024Q3

REPORT INFORMATION
  Report Type: Report from Study
  Country: ES (occurrence: ES)
  Receive Date: 20240715
  Receipt Date: 20240819
  Transmission Date: 20241017
  Serious: Yes (Hospitalization)
  Sender: ABBVIE
  Company Number: ES-ABBVIE-5835438

PATIENT
  Age: 58 Year
  Sex: Male
  Weight: 75.9 kg

DRUGS (4)
  1. RISANKIZUMAB [Suspect]
     Active Substance: RISANKIZUMAB
     Indication: Crohn^s disease
     Route: 058
     Dates: start: 20240625
  2. RISANKIZUMAB [Suspect]
     Active Substance: RISANKIZUMAB
     Indication: Crohn^s disease
     Route: 042
     Dates: start: 20240402, end: 20240624
  3. LORAZEPAM [Concomitant]
     Active Substance: LORAZEPAM
     Indication: Depression
     Route: 048
     Dates: start: 2021, end: 20240620
  4. FLUVOXAMINE [Concomitant]
     Active Substance: FLUVOXAMINE
     Indication: Depression
     Route: 048
     Dates: start: 20240621

REACTIONS (1)
  - Cholecystectomy [Recovered/Resolved]

NARRATIVE: CASE EVENT DATE: 20240708
